FAERS Safety Report 17715673 (Version 3)
Quarter: 2020Q2

REPORT INFORMATION
  Report Type: Spontaneous
  Country: US (occurrence: US)
  Receive Date: 20200427
  Receipt Date: 20200526
  Transmission Date: 20200714
  Serious: Yes (Hospitalization, Other)
  Sender: FDA-Public Use
  Company Number: NVSC2020US112678

PATIENT
  Sex: Male

DRUGS (1)
  1. VOTRIENT [Suspect]
     Active Substance: PAZOPANIB HYDROCHLORIDE
     Indication: RENAL CANCER
     Dosage: 800 MG, QD
     Route: 048
     Dates: start: 20200416

REACTIONS (7)
  - Back pain [Unknown]
  - Lung neoplasm malignant [Unknown]
  - Squamous cell carcinoma of lung [Unknown]
  - Dyspnoea [Unknown]
  - Renal cancer [Unknown]
  - Fatigue [Unknown]
  - Decreased appetite [Unknown]
